FAERS Safety Report 4682246-0 (Version None)
Quarter: 2005Q2

REPORT INFORMATION
  Report Type: 
  Country: None (occurrence: None)
  Receive Date: 20050606
  Receipt Date: 20050517
  Transmission Date: 20051028
  Serious: Yes (Other)
  Sender: FDA-Public Use
  Company Number: PHBS2005CA07002

PATIENT
  Sex: Female
  Weight: 58 kg

DRUGS (1)
  1. TRILEPTAL [Suspect]
     Indication: TEMPORAL LOBE EPILEPSY
     Route: 048
     Dates: end: 20050319

REACTIONS (11)
  - BACK PAIN [None]
  - BONE MARROW DEPRESSION [None]
  - INFLUENZA LIKE ILLNESS [None]
  - NEUTROPENIA [None]
  - PANCYTOPENIA [None]
  - PHARYNGOLARYNGEAL PAIN [None]
  - PLATELET COUNT DECREASED [None]
  - PRODUCTIVE COUGH [None]
  - RESPIRATORY TRACT INFECTION VIRAL [None]
  - SPUTUM PURULENT [None]
  - WHITE BLOOD CELL COUNT DECREASED [None]
